FAERS Safety Report 12294246 (Version 1)
Quarter: 2016Q2

REPORT INFORMATION
  Report Type: Spontaneous
  Country: US (occurrence: US)
  Receive Date: 20160422
  Receipt Date: 20160422
  Transmission Date: 20160815
  Serious: No
  Sender: FDA-Public Use
  Company Number: US-DRREDDYS-USA/USA/16/0055201

PATIENT
  Age: 27 Year
  Sex: Female

DRUGS (2)
  1. ZENATANE [Suspect]
     Active Substance: ISOTRETINOIN
     Indication: ACNE
     Route: 048
     Dates: start: 20151227
  2. ZENATANE [Suspect]
     Active Substance: ISOTRETINOIN
     Route: 048
     Dates: start: 201601

REACTIONS (4)
  - Erythema [Not Recovered/Not Resolved]
  - Tenderness [Not Recovered/Not Resolved]
  - Inflammation [Recovered/Resolved]
  - Oral pain [Not Recovered/Not Resolved]
